FAERS Safety Report 16885276 (Version 1)
Quarter: 2019Q4

REPORT INFORMATION
  Report Type: Spontaneous
  Country: US (occurrence: US)
  Receive Date: 20191004
  Receipt Date: 20191004
  Transmission Date: 20200122
  Serious: Yes (Death, Hospitalization, Other)
  Sender: FDA-Public Use
  Company Number: US-HIKMA PHARMACEUTICALS USA INC.-US-H14001-19-04409

PATIENT
  Age: 62 Year
  Sex: Female
  Weight: 67.66 kg

DRUGS (4)
  1. ITACITINIB OR PLACEBO [Suspect]
     Active Substance: ITACITINIB
     Indication: ACUTE GRAFT VERSUS HOST DISEASE
     Route: 065
     Dates: start: 20190321
  2. PREDNISONE. [Suspect]
     Active Substance: PREDNISONE
     Indication: ACUTE GRAFT VERSUS HOST DISEASE
     Route: 065
     Dates: start: 20190325, end: 20190325
  3. METHYLPREDNISOLONE. [Suspect]
     Active Substance: METHYLPREDNISOLONE
     Route: 065
     Dates: start: 20190326
  4. METHYLPREDNISOLONE. [Suspect]
     Active Substance: METHYLPREDNISOLONE
     Indication: ACUTE GRAFT VERSUS HOST DISEASE
     Route: 065
     Dates: start: 20190319, end: 20190324

REACTIONS (14)
  - Multiple organ dysfunction syndrome [Unknown]
  - Renal failure [Unknown]
  - Encephalopathy [Unknown]
  - Acute respiratory failure [Unknown]
  - Myopathy [Recovering/Resolving]
  - Metabolic acidosis [Unknown]
  - Pancytopenia [Unknown]
  - Atelectasis [Unknown]
  - Shock [Unknown]
  - Septic shock [Fatal]
  - Acute myocardial infarction [Unknown]
  - Colitis [Unknown]
  - Culture urine positive [Unknown]
  - Pneumonia [Unknown]

NARRATIVE: CASE EVENT DATE: 20190407
